FAERS Safety Report 5688768-8 (Version None)
Quarter: 2008Q1

REPORT INFORMATION
  Report Type: 
  Country: None (occurrence: None)
  Receive Date: 20080331
  Receipt Date: 20080318
  Transmission Date: 20080703
  Serious: Yes (Other)
  Sender: FDA-Public Use
  Company Number: SE-AMGEN-UK270319

PATIENT
  Sex: Female

DRUGS (1)
  1. NEUPOGEN [Suspect]
     Indication: BLOOD STEM CELL HARVEST
     Route: 058
     Dates: start: 20080314, end: 20080317

REACTIONS (5)
  - CARDIAC DISORDER [None]
  - CHEST PAIN [None]
  - LABORATORY TEST INTERFERENCE [None]
  - PAIN [None]
  - TROPONIN INCREASED [None]
